FAERS Safety Report 21897251 (Version 1)
Quarter: 2023Q1

REPORT INFORMATION
  Report Type: Spontaneous
  Country: US (occurrence: None)
  Receive Date: 20230121
  Receipt Date: 20230121
  Transmission Date: 20230418
  Serious: Yes (Disabling)
  Sender: FDA-Public Use
  Company Number: None

PATIENT
  Age: 77 Year
  Sex: Female
  Weight: 78.75 kg

DRUGS (5)
  1. MAGNESIUM CITRATE ORAL CHERRY FLAVOR [Suspect]
     Active Substance: MAGNESIUM CITRATE
     Indication: Constipation
     Dosage: OTHER QUANTITY : 10 OUNCE(S);?FREQUENCY : AS NEEDED;?
     Route: 048
  2. DEVICE [Concomitant]
     Active Substance: DEVICE
  3. LOW DOSE ASPIRIN [Concomitant]
     Active Substance: ASPIRIN
  4. daily vitamin + mineral supplement [Concomitant]
  5. CALCIUM [Concomitant]
     Active Substance: CALCIUM

REACTIONS (15)
  - Flatulence [None]
  - Abdominal distension [None]
  - Abdominal distension [None]
  - Decreased appetite [None]
  - Alopecia [None]
  - Lymphadenopathy [None]
  - Weight decreased [None]
  - Nausea [None]
  - Diarrhoea [None]
  - Asthenia [None]
  - Anxiety [None]
  - Depression [None]
  - Loss of personal independence in daily activities [None]
  - Recalled product administered [None]
  - Product contamination [None]

NARRATIVE: CASE EVENT DATE: 20220830
